FAERS Safety Report 8007213-0 (Version None)
Quarter: 2011Q4

REPORT INFORMATION
  Report Type: 
  Country: None (occurrence: None)
  Receive Date: 20111227
  Receipt Date: 20111222
  Transmission Date: 20120403
  Serious: Yes (Other)
  Sender: FDA-Public Use
  Company Number: CN-PFIZER INC-2011295508

PATIENT
  Age: 80 Year
  Sex: Male

DRUGS (1)
  1. DIFLUCAN [Suspect]
     Dosage: 200 MG, 1X/DAY
     Route: 041

REACTIONS (2)
  - RENAL IMPAIRMENT [None]
  - CREATININE URINE INCREASED [None]
